FAERS Safety Report 8161680-0 (Version None)
Quarter: 2012Q1

REPORT INFORMATION
  Report Type: 
  Country: None (occurrence: None)
  Receive Date: 20120224
  Receipt Date: 20110906
  Transmission Date: 20120608
  Serious: No
  Sender: FDA-Public Use
  Company Number: US-BRISTOL-MYERS SQUIBB COMPANY-15985369

PATIENT
  Age: 41 Year
  Sex: Male

DRUGS (1)
  1. AZACTAM [Suspect]
     Dosage: ALSO ON 18AUG2011;
     Route: 042
     Dates: start: 20101011

REACTIONS (1)
  - EXPIRED DRUG ADMINISTERED [None]
